FAERS Safety Report 20370014 (Version 1)
Quarter: 2022Q1

REPORT INFORMATION
  Report Type: Report from Study
  Country: US (occurrence: None)
  Receive Date: 20220124
  Receipt Date: 20220124
  Transmission Date: 20220424
  Serious: Yes (Other)
  Sender: FDA-Public Use
  Company Number: US-ROCHE-3000936

PATIENT
  Age: 59 Year
  Sex: Female
  Weight: 57.9 kg

DRUGS (3)
  1. ATEZOLIZUMAB [Suspect]
     Active Substance: ATEZOLIZUMAB
     Indication: Ovarian cancer
     Dosage: ON DAYS 1 AND 15?ON 20/SEP/2021, RECEIVED LAST DOSE OF ATEZOLIZUMAB BEFORE EVENT
     Route: 041
     Dates: start: 20210726
  2. BEVACIZUMAB [Suspect]
     Active Substance: BEVACIZUMAB
     Indication: Ovarian cancer
     Dosage: ON DAYS 1 AND 15?ON 20/SEP/2021, RECEIVED LAST DOSE OF BEVACIZUMAB BEFORE EVENT
     Route: 042
     Dates: start: 20210726
  3. DOXORUBICIN [Suspect]
     Active Substance: DOXORUBICIN
     Indication: Ovarian cancer
     Dosage: ON 20/SEP/2021, RECEIVED LAST DOSE OF LIPOSOMAL DOXORUBICIN BEFORE EVENT
     Route: 042
     Dates: start: 20210726

REACTIONS (2)
  - Rash maculo-papular [Not Recovered/Not Resolved]
  - Palmar-plantar erythrodysaesthesia syndrome [Not Recovered/Not Resolved]

NARRATIVE: CASE EVENT DATE: 20210929
